FAERS Safety Report 9764675 (Version 1)
Quarter: 2013Q4

REPORT INFORMATION
  Report Type: Spontaneous
  Country: US (occurrence: US)
  Receive Date: 20131217
  Receipt Date: 20131217
  Transmission Date: 20140711
  Serious: Yes (Other)
  Sender: FDA-Public Use
  Company Number: US-JNJCP-30000191038

PATIENT
  Sex: Female
  Weight: 82 kg

DRUGS (4)
  1. NEUTROGENA AGE SHIELD FACE SPF 110 [Suspect]
     Indication: PROPHYLAXIS
     Dosage: SIZE OF A COIN, ONE TIME PER DAY IN THE MORNING
     Route: 061
  2. NEUTROGENA AGE SHIELD FACE SPF 90 [Suspect]
     Indication: PROPHYLAXIS
     Dosage: SIZE OF A NICKLE AMOUNT, ONE TIME PER DAY
     Route: 061
  3. COSMETICS [Suspect]
     Indication: SKIN WRINKLING
     Dosage: PEARL SIZE AMOUNT, EVERY NIGHT AND IN THE MORNING
     Route: 061
  4. COSMETICS [Suspect]
     Indication: REMOVAL OF INERT MATTER FROM SKIN OR SUBCUTANEOUS TISSUE
     Dosage: THREE PUMP SIZE AMOUNT, IN THE MORNING AND AT NIGHT
     Route: 061
     Dates: start: 20100401

REACTIONS (2)
  - Basal cell carcinoma [Not Recovered/Not Resolved]
  - Expired drug administered [Unknown]
